FAERS Safety Report 8756129 (Version 1)
Quarter: 2012Q4

REPORT INFORMATION
  Report Type: 
  Country: US (occurrence: US)
  Receive Date: 20120828
  Receipt Date: 20120828
  Transmission Date: 20130627
  Serious: No
  Sender: FDA-Public Use
  Company Number: US-PFIZER INC-2012208764

PATIENT
  Age: 62 Year
  Sex: Male
  Weight: 112 kg

DRUGS (9)
  1. NITROSTAT [Suspect]
     Indication: ARTERIAL DISORDER
     Dosage: 0.4 mg, UNK
     Dates: start: 200701
  2. NITROSTAT [Suspect]
     Dosage: 0.6 mg, 2x/day
  3. NITROSTAT [Suspect]
     Dosage: 0.4 mg, eight times a day
  4. PLAVIX [Concomitant]
     Dosage: UNK
  5. LISINOPRIL [Concomitant]
     Dosage: UNK, 1x/day at night
  6. LUNESTA [Concomitant]
     Dosage: UNK, 2x/day
  7. METOPROLOL [Concomitant]
     Dosage: UNK, 1x/day at night
  8. ADVAIR [Concomitant]
     Dosage: UNK, 2x/day
  9. HYDRALAZINE [Concomitant]
     Dosage: 25 mg, 1x/day at night

REACTIONS (3)
  - Chest pain [Unknown]
  - Tremor [Unknown]
  - Drug ineffective [Unknown]
